FAERS Safety Report 5657359-7 (Version None)
Quarter: 2008Q1

REPORT INFORMATION
  Report Type: 
  Country: None (occurrence: None)
  Receive Date: 20080307
  Receipt Date: 20080307
  Transmission Date: 20080703
  Serious: No
  Sender: FDA-Public Use
  Company Number: None

PATIENT
  Sex: Female
  Weight: 52.3 kg

DRUGS (1)
  1. TEMOZOLOMIDE [Suspect]
     Dosage: 12850 MG

REACTIONS (6)
  - ANOREXIA [None]
  - HOT FLUSH [None]
  - MEMORY IMPAIRMENT [None]
  - MYALGIA [None]
  - NIGHT SWEATS [None]
  - PAIN IN EXTREMITY [None]
